FAERS Safety Report 13048117 (Version 2)
Quarter: 2017Q2

REPORT INFORMATION
  Report Type: Spontaneous
  Country: AR (occurrence: AR)
  Receive Date: 20161220
  Receipt Date: 20170613
  Transmission Date: 20170830
  Serious: Yes (Other)
  Sender: FDA-Public Use
  Company Number: AR-GLAXOSMITHKLINE-AR2016GSK072468

PATIENT
  Age: 41 Year
  Sex: Female

DRUGS (3)
  1. BENLYSTA [Suspect]
     Active Substance: BELIMUMAB
     Dosage: UNK
     Dates: start: 20161111
  2. CORTICOIDS [Concomitant]
     Active Substance: UNSPECIFIED INGREDIENT
     Indication: PRODUCT USED FOR UNKNOWN INDICATION
     Dosage: UNK
  3. BENLYSTA [Suspect]
     Active Substance: BELIMUMAB
     Indication: SYSTEMIC LUPUS ERYTHEMATOSUS
     Dosage: UNK
     Dates: start: 20140930, end: 20170102

REACTIONS (15)
  - Off label use [Unknown]
  - Pain [Unknown]
  - Pyrexia [Not Recovered/Not Resolved]
  - Rhinitis allergic [Unknown]
  - Bronchitis [Unknown]
  - Ocular hyperaemia [Unknown]
  - Tonsillitis [Unknown]
  - Viral upper respiratory tract infection [Unknown]
  - Hypothyroidism [Unknown]
  - Hyperthyroidism [Unknown]
  - Skin ulcer [Not Recovered/Not Resolved]
  - Raynaud^s phenomenon [Unknown]
  - Influenza [Recovered/Resolved]
  - Inappropriate schedule of drug administration [Unknown]
  - Dysphonia [Unknown]

NARRATIVE: CASE EVENT DATE: 201606
